FAERS Safety Report 9524394 (Version 1)
Quarter: 2013Q3

REPORT INFORMATION
  Report Type: Spontaneous
  Country: NO (occurrence: NO)
  Receive Date: 20130916
  Receipt Date: 20130916
  Transmission Date: 20140515
  Serious: Yes (Death)
  Sender: FDA-Public Use
  Company Number: NO-SANOFI-AVENTIS-2013SA089238

PATIENT
  Age: 61 Year
  Sex: Male

DRUGS (3)
  1. PLAVIX [Suspect]
     Indication: PERCUTANEOUS CORONARY INTERVENTION
     Route: 048
  2. ALBYL-E [Suspect]
     Indication: PERCUTANEOUS CORONARY INTERVENTION
     Route: 048
  3. MAREVAN [Suspect]
     Indication: ATRIAL FIBRILLATION
     Route: 048

REACTIONS (4)
  - Death [Fatal]
  - Cerebral haemorrhage [Fatal]
  - Malaise [Fatal]
  - Loss of consciousness [Fatal]
